FAERS Safety Report 7809096-8 (Version None)
Quarter: 2011Q4

REPORT INFORMATION
  Report Type: 
  Country: None (occurrence: None)
  Receive Date: 20111006
  Receipt Date: 20110920
  Transmission Date: 20120403
  Serious: Yes (Death, Other)
  Sender: FDA-Public Use
  Company Number: 2011MA014167

PATIENT
  Age: 63 Year
  Sex: Male

DRUGS (4)
  1. CISPLATIN [Suspect]
     Indication: GASTRIC CANCER
     Dosage: 60 MG/M**2;
     Dates: start: 20031120
  2. IRINOTECAN HYDROCHLORIDE INJECTION, 20MG/ML (40MG/ 2ML AND 100MG/5ML) [Suspect]
     Indication: GASTRIC CANCER
     Dosage: 50 MG/M**2;TIW;UNK
     Dates: start: 20050602
  3. S-1 (NO PREF. NAME) [Suspect]
     Indication: GASTRIC CANCER
     Dosage: 120 MG; QD;UNK
     Dates: start: 20031120
  4. PACLITAXEL [Suspect]
     Indication: GASTRIC CANCER
     Dosage: 60 G/M**2;UNK;ICAV
     Dates: start: 20040329

REACTIONS (3)
  - LEUKOPENIA [None]
  - ALOPECIA [None]
  - ANAEMIA [None]
